FAERS Safety Report 6663124-4 (Version None)
Quarter: 2010Q2

REPORT INFORMATION
  Report Type: 
  Country: None (occurrence: None)
  Receive Date: 20100401
  Receipt Date: 20100330
  Transmission Date: 20101027
  Serious: Yes (Death)
  Sender: FDA-Public Use
  Company Number: JP-JNJFOC-20100304931

PATIENT
  Sex: Male

DRUGS (11)
  1. DUROTEP MT PATCH [Suspect]
     Indication: CANCER PAIN
     Route: 062
  2. DUROTEP MT PATCH [Suspect]
     Route: 062
  3. OXYCONTIN [Concomitant]
     Indication: CANCER PAIN
     Route: 048
  4. OXYCODONE HCL [Concomitant]
     Indication: CANCER PAIN
     Route: 048
  5. OXYCODONE HCL [Concomitant]
     Route: 048
  6. PROCHLORPERAZINE [Concomitant]
     Indication: PROPHYLAXIS
     Route: 048
  7. MAGMITT [Concomitant]
     Indication: PROPHYLAXIS
     Route: 048
  8. GLYSENNID [Concomitant]
     Indication: PROPHYLAXIS
     Route: 048
  9. DECADRON [Concomitant]
     Route: 048
  10. OMEPRAL [Concomitant]
     Route: 048
  11. FOY [Concomitant]
     Indication: DISSEMINATED INTRAVASCULAR COAGULATION
     Route: 042

REACTIONS (3)
  - ASPARTATE AMINOTRANSFERASE INCREASED [None]
  - DISSEMINATED INTRAVASCULAR COAGULATION [None]
  - DRUG ADMINISTRATION ERROR [None]
